FAERS Safety Report 9352679 (Version 1)
Quarter: 2013Q2

REPORT INFORMATION
  Report Type: Report from Study
  Country: AU (occurrence: AU)
  Receive Date: 20130618
  Receipt Date: 20130618
  Transmission Date: 20140414
  Serious: Yes (Hospitalization, Other)
  Sender: FDA-Public Use
  Company Number: AU-ROCHE-1234647

PATIENT
  Age: 83 Year
  Sex: Female
  Weight: 96.79 kg

DRUGS (2)
  1. RANIBIZUMAB [Suspect]
     Indication: AGE-RELATED MACULAR DEGENERATION
     Dosage: LAST DOSE PRIOR TO SAE ON 20 MAY 2013
     Route: 050
     Dates: start: 20071001
  2. OFLOXACIN [Concomitant]

REACTIONS (2)
  - Endophthalmitis [Recovering/Resolving]
  - Blindness [Unknown]
